FAERS Safety Report 13245349 (Version 2)
Quarter: 2017Q1

REPORT INFORMATION
  Report Type: Report from Study
  Country: PL (occurrence: PL)
  Receive Date: 20170217
  Receipt Date: 20170222
  Transmission Date: 20170428
  Serious: Yes (Disabling)
  Sender: FDA-Public Use
  Company Number: PL-AMGEN-POLCT2017024023

PATIENT
  Age: 74 Year
  Sex: Female
  Weight: 95 kg

DRUGS (8)
  1. VITAMIN D3 [Concomitant]
     Active Substance: CHOLECALCIFEROL
     Dosage: 400 IU, UNK
     Route: 048
     Dates: start: 20120822
  2. DENOSUMAB [Suspect]
     Active Substance: DENOSUMAB
     Indication: BREAST CANCER
     Dosage: 120 MG, UNK
     Route: 058
     Dates: start: 20110428, end: 20160329
  3. LETROX [Concomitant]
     Active Substance: LEVOTHYROXINE SODIUM
     Dosage: 100 UNK, UNK
     Route: 048
     Dates: start: 20140804
  4. CALCIUM [Concomitant]
     Active Substance: CALCIUM
     Dosage: 1250 MG, UNK
     Route: 048
     Dates: start: 20120822
  5. BISOPROMERCK [Concomitant]
     Active Substance: BISOPROLOL FUMARATE
     Dosage: 1 UNK, UNK
     Route: 048
     Dates: start: 2001
  6. NIMESIL [Concomitant]
     Active Substance: NIMESULIDE
     Dosage: 100 MG, UNK
     Route: 048
     Dates: start: 2014
  7. PRESTARIUM [Concomitant]
     Active Substance: PERINDOPRIL
     Dosage: 5 MG, UNK
     Route: 048
     Dates: start: 201604
  8. GLUCOPHAGE [Concomitant]
     Active Substance: METFORMIN HYDROCHLORIDE
     Dosage: 750 MCG, UNK
     Route: 048
     Dates: start: 201401

REACTIONS (1)
  - Osteonecrosis of jaw [Not Recovered/Not Resolved]

NARRATIVE: CASE EVENT DATE: 201612
